FAERS Safety Report 9671528 (Version 2)
Quarter: 2014Q1

REPORT INFORMATION
  Report Type: Spontaneous
  Country: US (occurrence: US)
  Receive Date: 20131106
  Receipt Date: 20140106
  Transmission Date: 20141002
  Serious: Yes (Other)
  Sender: FDA-Public Use
  Company Number: US-NOVOPROD-391413

PATIENT
  Age: 39 Year
  Sex: Female
  Weight: 79.37 kg

DRUGS (4)
  1. VICTOZA [Suspect]
     Indication: TYPE 2 DIABETES MELLITUS
     Dosage: 0.6 MG QD
     Route: 058
     Dates: start: 20130501, end: 20130506
  2. VICTOZA [Suspect]
     Indication: WEIGHT DECREASED
     Dosage: 1.2 MG QD
     Route: 058
     Dates: start: 20130507, end: 20130531
  3. CALCIUM [Concomitant]
     Indication: SUPPLEMENTATION THERAPY
     Dosage: UNKNOWN
  4. NIACIN [Concomitant]
     Indication: DYSLIPIDAEMIA
     Dosage: UNKNOWN

REACTIONS (2)
  - Abortion induced [Recovered/Resolved]
  - Exposure during pregnancy [Recovered/Resolved]
